FAERS Safety Report 6667614-X (Version None)
Quarter: 2010Q2

REPORT INFORMATION
  Report Type: 
  Country: None (occurrence: None)
  Receive Date: 20100405
  Receipt Date: 20100331
  Transmission Date: 20101027
  Serious: Yes (Other)
  Sender: FDA-Public Use
  Company Number: CHPA2010CA06051

PATIENT
  Age: 55 Year
  Sex: Female
  Weight: 95.238 kg

DRUGS (1)
  1. NEOCITRAN COLDS + FLU (NCH) [Suspect]
     Indication: DECREASED APPETITE
     Dosage: 4 DF, QD
     Route: 048

REACTIONS (6)
  - DECREASED APPETITE [None]
  - DRUG ADMINISTRATION ERROR [None]
  - DRUG DEPENDENCE [None]
  - INTENTIONAL DRUG MISUSE [None]
  - OFF LABEL USE [None]
  - OVERDOSE [None]
